FAERS Safety Report 14588295 (Version 1)
Quarter: 2018Q1

REPORT INFORMATION
  Report Type: Spontaneous
  Country: US (occurrence: US)
  Receive Date: 20180301
  Receipt Date: 20180301
  Transmission Date: 20180509
  Serious: Yes (Other)
  Sender: FDA-Public Use
  Company Number: US-PFIZER INC-2018072247

PATIENT
  Age: 61 Year
  Sex: Female
  Weight: 50.79 kg

DRUGS (2)
  1. ROBITUSSIN COUGH AND CHEST CONGESTION DM MAX [Suspect]
     Active Substance: DEXTROMETHORPHAN HYDROBROMIDE\GUAIFENESIN
     Indication: RESPIRATORY TRACT CONGESTION
     Dosage: 20 ML, UNK (POSSIBLY A LITTLE LESS) (4 OR 5 DOSES SPACED APART APPROPRIATELY)
     Route: 048
     Dates: start: 201712
  2. ROBITUSSIN COUGH AND CHEST CONGESTION DM MAX [Suspect]
     Active Substance: DEXTROMETHORPHAN HYDROBROMIDE\GUAIFENESIN
     Indication: INFLUENZA

REACTIONS (20)
  - Poor quality drug administered [Unknown]
  - Swelling [Recovered/Resolved]
  - Chapped lips [Unknown]
  - Product quality issue [Unknown]
  - Drug ineffective [Unknown]
  - Hypersensitivity [Recovered/Resolved]
  - Face oedema [Recovered/Resolved]
  - Lip swelling [Recovered/Resolved]
  - Asthma [Unknown]
  - Respiratory tract congestion [Unknown]
  - Oropharyngeal pain [Unknown]
  - Malaise [Recovered/Resolved]
  - Eye oedema [Recovered/Resolved]
  - Anaphylactic reaction [Recovered/Resolved]
  - Fatigue [Unknown]
  - Condition aggravated [Unknown]
  - Lip oedema [Recovered/Resolved]
  - Body temperature increased [Unknown]
  - Pain [Unknown]
  - Chest discomfort [Unknown]

NARRATIVE: CASE EVENT DATE: 20171217
